FAERS Safety Report 16257069 (Version 3)
Quarter: 2019Q2

REPORT INFORMATION
  Report Type: Spontaneous
  Country: US (occurrence: US)
  Receive Date: 20190430
  Receipt Date: 20190621
  Transmission Date: 20190711
  Serious: Yes (Hospitalization)
  Sender: FDA-Public Use
  Company Number: US-OTSUKA-2019_015232

PATIENT
  Age: 24 Year
  Sex: Male

DRUGS (9)
  1. CELEXA [Concomitant]
     Active Substance: CITALOPRAM HYDROBROMIDE
     Indication: SLEEP DEFICIT
     Dosage: 40 MG, BID
     Route: 065
     Dates: start: 20130228
  2. ABILIFY [Suspect]
     Active Substance: ARIPIPRAZOLE
     Indication: BIPOLAR I DISORDER
     Dosage: UNK
     Route: 048
     Dates: start: 201501
  3. RISPERDAL [Concomitant]
     Active Substance: RISPERIDONE
     Indication: IMPULSIVE BEHAVIOUR
  4. CELEXA [Concomitant]
     Active Substance: CITALOPRAM HYDROBROMIDE
     Indication: IMPULSIVE BEHAVIOUR
  5. RISPERDAL [Concomitant]
     Active Substance: RISPERIDONE
     Indication: SLEEP DEFICIT
     Dosage: 1 MG, BID
     Route: 065
  6. ABILIFY MAINTENA [Suspect]
     Active Substance: ARIPIPRAZOLE
     Indication: SCHIZOPHRENIA
     Dosage: 400 MG, QM
     Route: 065
     Dates: start: 201807
  7. ABILIFY [Suspect]
     Active Substance: ARIPIPRAZOLE
     Dosage: UNK
     Route: 048
     Dates: end: 2018
  8. RITALIN [Concomitant]
     Active Substance: METHYLPHENIDATE HYDROCHLORIDE
     Indication: PRODUCT USED FOR UNKNOWN INDICATION
     Dosage: 10 MG, QD (ONE IN THE AM)
     Route: 065
     Dates: start: 20130228
  9. ABILIFY MAINTENA [Suspect]
     Active Substance: ARIPIPRAZOLE
     Dosage: 300 MG, QM
     Route: 065

REACTIONS (15)
  - Thinking abnormal [Unknown]
  - Cognitive disorder [Unknown]
  - Catatonia [Unknown]
  - Behaviour disorder [Recovered/Resolved]
  - Mobility decreased [Recovering/Resolving]
  - Anxiety [Unknown]
  - Homeless [Unknown]
  - Blunted affect [Recovered/Resolved]
  - Aggression [Recovered/Resolved]
  - Depressed mood [Unknown]
  - Treatment noncompliance [Unknown]
  - Hypersomnia [Recovered/Resolved]
  - Schizophrenia [Recovered/Resolved]
  - Loss of personal independence in daily activities [Recovered/Resolved]
  - Stress [Unknown]

NARRATIVE: CASE EVENT DATE: 201605
